FAERS Safety Report 9464372 (Version 1)
Quarter: 2013Q3

REPORT INFORMATION
  Report Type: Spontaneous
  Country: DE (occurrence: DE)
  Receive Date: 20130819
  Receipt Date: 20130819
  Transmission Date: 20140515
  Serious: Yes (Hospitalization)
  Sender: FDA-Public Use
  Company Number: DE-ABBOTT-13P-062-1133806-00

PATIENT
  Age: 18 Year
  Sex: Female

DRUGS (1)
  1. ENANTONE [Suspect]
     Indication: PRECOCIOUS PUBERTY
     Route: 058
     Dates: start: 2002, end: 2005

REACTIONS (2)
  - Bipolar disorder [Not Recovered/Not Resolved]
  - Depression [Unknown]
